FAERS Safety Report 25529516 (Version 1)
Quarter: 2025Q3

REPORT INFORMATION
  Report Type: Spontaneous
  Country: CN (occurrence: CN)
  Receive Date: 20250708
  Receipt Date: 20250708
  Transmission Date: 20251021
  Serious: Yes (Hospitalization, Other)
  Sender: NOVO NORDISK
  Company Number: CN-NOVOPROD-1471489

PATIENT
  Age: 75 Year
  Sex: Male
  Weight: 75 kg

DRUGS (2)
  1. NOVOLIN R [Suspect]
     Active Substance: INSULIN HUMAN
     Dosage: 58 IU, QD (30 UNITS IN THE MORNING AND 28 UNITS IN THE EVENING, DOSE INCREASED)
  2. NOVOLIN R [Suspect]
     Active Substance: INSULIN HUMAN
     Indication: Type 2 diabetes mellitus

REACTIONS (3)
  - Papilloedema [Not Recovered/Not Resolved]
  - Vision blurred [Not Recovered/Not Resolved]
  - Dizziness [Not Recovered/Not Resolved]
